FAERS Safety Report 21909637 (Version 3)
Quarter: 2024Q3

REPORT INFORMATION
  Report Type: Report from Study
  Country: CA (occurrence: CA)
  Receive Date: 20230125
  Receipt Date: 20240923
  Transmission Date: 20241017
  Serious: Yes (Hospitalization, Other)
  Sender: INCYTE
  Company Number: CA-002147023-NVSC2023CA009099

PATIENT

DRUGS (4)
  1. RUXOLITINIB [Suspect]
     Active Substance: RUXOLITINIB
     Indication: Splenomegaly
     Dosage: 15 MG, BID
     Route: 048
     Dates: start: 20220121
  2. RUXOLITINIB [Suspect]
     Active Substance: RUXOLITINIB
     Dosage: 20 MG, BID
     Route: 048
  3. AMIODARONE [Concomitant]
     Active Substance: AMIODARONE
     Indication: Atrial fibrillation
     Dosage: UNK
     Route: 065
  4. ELIQUIS [Concomitant]
     Active Substance: APIXABAN
     Indication: Atrial fibrillation
     Dosage: UNK
     Route: 065

REACTIONS (20)
  - Abdominal discomfort [Unknown]
  - Anaemia [Unknown]
  - Vitamin B12 decreased [Unknown]
  - Back pain [Not Recovered/Not Resolved]
  - Faeces discoloured [Unknown]
  - Constipation [Unknown]
  - Cough [Unknown]
  - Wheezing [Unknown]
  - Diverticulum [Unknown]
  - Dyspnoea [Unknown]
  - Splenomegaly [Unknown]
  - Fatigue [Unknown]
  - Hepatic steatosis [Unknown]
  - Pyrexia [Recovered/Resolved]
  - Hyperkalaemia [Unknown]
  - Product use in unapproved indication [Unknown]
  - Myelofibrosis [Unknown]
  - Decreased appetite [Unknown]
  - Asthenia [Unknown]
  - Weight decreased [Unknown]

NARRATIVE: CASE EVENT DATE: 20220121
